FAERS Safety Report 6300856-1 (Version None)
Quarter: 2009Q3

REPORT INFORMATION
  Report Type: 
  Country: None (occurrence: None)
  Receive Date: 20090807
  Receipt Date: 20090728
  Transmission Date: 20100115
  Serious: Yes (Death, Other)
  Sender: FDA-Public Use
  Company Number: JP-PFIZER INC-2009243822

PATIENT
  Age: 62 Year

DRUGS (2)
  1. VFEND [Suspect]
     Dosage: UNK
     Route: 048
     Dates: start: 20081001, end: 20090717
  2. VFEND [Suspect]
     Route: 042
     Dates: start: 20081201

REACTIONS (3)
  - CONCOMITANT DISEASE AGGRAVATED [None]
  - HEPATIC FUNCTION ABNORMAL [None]
  - MUSCULOSKELETAL STIFFNESS [None]
